FAERS Safety Report 9842193 (Version 2)
Quarter: 2014Q1

REPORT INFORMATION
  Report Type: Spontaneous
  Country: US (occurrence: US)
  Receive Date: 20140124
  Receipt Date: 20140324
  Transmission Date: 20141002
  Serious: Yes (Other)
  Sender: FDA-Public Use
  Company Number: US-GLAXOSMITHKLINE-A1056922A

PATIENT
  Age: 43 Year
  Sex: Male

DRUGS (7)
  1. VOTRIENT [Suspect]
     Indication: RENAL CANCER
     Dosage: 800MG PER DAY
     Route: 048
     Dates: start: 20130907
  2. NEXIUM [Concomitant]
  3. BENICAR [Concomitant]
  4. VITAMIN D [Concomitant]
  5. LANTUS [Concomitant]
  6. APIDRA [Concomitant]
  7. METFORMIN [Concomitant]

REACTIONS (6)
  - Tunnel vision [Unknown]
  - Dyspnoea [Unknown]
  - Amnesia [Unknown]
  - Hair colour changes [Unknown]
  - Blood pressure increased [Unknown]
  - Vision blurred [Unknown]
